FAERS Safety Report 7444694-5 (Version None)
Quarter: 2011Q2

REPORT INFORMATION
  Report Type: 
  Country: None (occurrence: None)
  Receive Date: 20110426
  Receipt Date: 20110426
  Transmission Date: 20111010
  Serious: Yes (Death)
  Sender: FDA-Public Use
  Company Number: None

PATIENT
  Age: 59 Year
  Sex: Male

DRUGS (10)
  1. GLARGINE [Concomitant]
  2. LORAZEPAM [Concomitant]
  3. SENNA-MINT WAF [Concomitant]
  4. REVLIMID [Suspect]
     Indication: MULTIPLE MYELOMA
     Dosage: 10 MG DAILY X21D/28D ORALLY
     Route: 048
  5. NOVOLIN R [Concomitant]
  6. MORPHINE [Concomitant]
  7. DEXAMETHASONE [Concomitant]
  8. ACYCLOVIR [Concomitant]
  9. DOCUSATE [Concomitant]
  10. PROCHLORPERAZINE TAB [Concomitant]

REACTIONS (5)
  - MUSCULAR WEAKNESS [None]
  - ASTHENIA [None]
  - HYPOAESTHESIA [None]
  - MULTIPLE MYELOMA [None]
  - NEOPLASM PROGRESSION [None]
